FAERS Safety Report 7801361-3 (Version None)
Quarter: 2011Q4

REPORT INFORMATION
  Report Type: 
  Country: None (occurrence: None)
  Receive Date: 20111006
  Receipt Date: 20111006
  Transmission Date: 20120403
  Serious: Yes (Hospitalization)
  Sender: FDA-Public Use
  Company Number: None

PATIENT
  Age: 83 Year
  Sex: Female
  Weight: 50 kg

DRUGS (14)
  1. JANUMET [Concomitant]
  2. AMARYL [Concomitant]
  3. ACIPHEX [Concomitant]
  4. ACTOS [Concomitant]
  5. DESYREL [Concomitant]
  6. NORVASC [Concomitant]
  7. MAXZIDE [Concomitant]
  8. ENTOCORT EC [Concomitant]
  9. COREG [Concomitant]
  10. VIT D2 [Concomitant]
  11. LANOXIN [Suspect]
     Indication: ATRIAL FIBRILLATION
     Dosage: 0.25MG QHS PO CHRONIC
     Route: 048
  12. TRICOR [Concomitant]
  13. PRAVACHOL [Concomitant]
  14. ULTRACET [Concomitant]

REACTIONS (3)
  - TOXICITY TO VARIOUS AGENTS [None]
  - URINARY TRACT INFECTION [None]
  - ASTHENIA [None]
